FAERS Safety Report 9613483 (Version 1)
Quarter: 2013Q4

REPORT INFORMATION
  Report Type: Spontaneous
  Country: US (occurrence: US)
  Receive Date: 20131010
  Receipt Date: 20131010
  Transmission Date: 20140711
  Serious: Yes (Other)
  Sender: FDA-Public Use
  Company Number: US-BAYER-2013-122621

PATIENT
  Age: 86 Year
  Sex: Female
  Weight: 56.24 kg

DRUGS (2)
  1. ALEVE TABLET [Suspect]
     Indication: ANALGESIC THERAPY
     Dosage: 2 DF, BID
     Route: 048
     Dates: start: 201309, end: 20131008
  2. LEVOTHYROXINE [Concomitant]

REACTIONS (2)
  - Haematochezia [Not Recovered/Not Resolved]
  - Extra dose administered [None]
